FAERS Safety Report 4506524-0 (Version None)
Quarter: 2004Q4

REPORT INFORMATION
  Report Type: 
  Country: None (occurrence: None)
  Receive Date: 20041122
  Receipt Date: 20041110
  Transmission Date: 20050328
  Serious: Yes (Life-Threatening, Hospitalization)
  Sender: FDA-Public Use
  Company Number: US-JNJFOC-20041102691

PATIENT
  Sex: Female
  Weight: 65 kg

DRUGS (11)
  1. DOXIL [Suspect]
     Indication: OVARIAN CANCER
     Route: 042
  2. GEMCITABINE [Suspect]
     Indication: OVARIAN CANCER
     Route: 042
  3. MAXZIDE [Concomitant]
  4. MAXZIDE [Concomitant]
  5. COMBIVENT [Concomitant]
  6. COMBIVENT [Concomitant]
  7. ZOCOR [Concomitant]
  8. EXCEDRIN (MIGRAINE) [Concomitant]
  9. EXCEDRIN (MIGRAINE) [Concomitant]
  10. EXCEDRIN (MIGRAINE) [Concomitant]
  11. EXCEDRIN (MIGRAINE) [Concomitant]

REACTIONS (20)
  - ANAEMIA [None]
  - ATRIAL FIBRILLATION [None]
  - ATRIAL FLUTTER [None]
  - CARDIAC FAILURE CONGESTIVE [None]
  - CHRONIC OBSTRUCTIVE AIRWAYS DISEASE EXACERBATED [None]
  - CONFUSIONAL STATE [None]
  - DEEP VEIN THROMBOSIS [None]
  - HEADACHE [None]
  - LUNG INFILTRATION [None]
  - MICTURITION URGENCY [None]
  - MITRAL VALVE CALCIFICATION [None]
  - NAUSEA [None]
  - PLEURAL EFFUSION [None]
  - PNEUMONITIS [None]
  - PULMONARY OEDEMA [None]
  - SINUS TACHYCARDIA [None]
  - TRICUSPID VALVE INCOMPETENCE [None]
  - VENTRICULAR EXTRASYSTOLES [None]
  - VENTRICULAR HYPERTROPHY [None]
  - VOMITING [None]
